FAERS Safety Report 25813381 (Version 1)
Quarter: 2025Q3

REPORT INFORMATION
  Report Type: Spontaneous
  Country: US (occurrence: US)
  Receive Date: 20250917
  Receipt Date: 20250917
  Transmission Date: 20251021
  Serious: No
  Sender: LUPIN
  Company Number: US-LUPIN PHARMACEUTICALS INC.-2025-08260

PATIENT
  Age: 78 Year
  Weight: 97.506 kg

DRUGS (3)
  1. ALBUTEROL SULFATE [Suspect]
     Active Substance: ALBUTEROL SULFATE
     Indication: Product used for unknown indication
  2. FLUTICASONE [Concomitant]
     Active Substance: FLUTICASONE
     Indication: Product used for unknown indication
  3. SALMETEROL [Concomitant]
     Active Substance: SALMETEROL
     Indication: Product used for unknown indication
     Route: 065

REACTIONS (3)
  - Expired product administered [Unknown]
  - Device delivery system issue [Unknown]
  - No adverse event [Unknown]
